FAERS Safety Report 4743571-8 (Version None)
Quarter: 2005Q3

REPORT INFORMATION
  Report Type: 
  Country: None (occurrence: None)
  Receive Date: 20050809
  Receipt Date: 20050724
  Transmission Date: 20060218
  Serious: Yes (Hospitalization)
  Sender: FDA-Public Use
  Company Number: DE-YAMANOUCHI-YEHQ20050333

PATIENT
  Sex: Female

DRUGS (1)
  1. VESICARE [Suspect]

REACTIONS (4)
  - GAMMA-GLUTAMYLTRANSFERASE ABNORMAL [None]
  - HEPATIC ENZYME INCREASED [None]
  - PANCREATIC ENZYME ABNORMALITY [None]
  - TRANSAMINASES ABNORMAL [None]
